FAERS Safety Report 16029167 (Version 1)
Quarter: 2019Q1

REPORT INFORMATION
  Report Type: Spontaneous
  Country: US (occurrence: US)
  Receive Date: 20190304
  Receipt Date: 20190304
  Transmission Date: 20190418
  Serious: Yes (Other)
  Sender: FDA-Public Use
  Company Number: US-SA-2019SA052256

PATIENT

DRUGS (5)
  1. ARAVA [Suspect]
     Active Substance: LEFLUNOMIDE
     Dosage: UNK UNK, UNK
     Route: 065
  2. METHOTREXATE. [Suspect]
     Active Substance: METHOTREXATE
  3. BENZYLPENICILLIN SODIUM [Suspect]
     Active Substance: PENICILLIN G SODIUM
  4. MORPHINE SALT NOT SPECIFIED [Suspect]
     Active Substance: MORPHINE
  5. MAGNESIUM (SALT NOT SPECIFIED) [Suspect]
     Active Substance: MAGNESIUM
     Dosage: UNK UNK, UNK
     Route: 065

REACTIONS (5)
  - Diarrhoea [Unknown]
  - Swollen tongue [Unknown]
  - Vertigo [Unknown]
  - Urticaria [Unknown]
  - Anaphylactic reaction [Unknown]
